FAERS Safety Report 4270527-4 (Version None)
Quarter: 2004Q1

REPORT INFORMATION
  Report Type: 
  Country: None (occurrence: None)
  Receive Date: 20040113
  Receipt Date: 20040113
  Transmission Date: 20041129
  Serious: Yes (Hospitalization)
  Sender: FDA-Public Use
  Company Number: None

PATIENT
  Age: 41 Year
  Sex: Female
  Weight: 77.1115 kg

DRUGS (2)
  1. CELEBREX [Suspect]
     Indication: PLANTAR FASCIITIS
     Dosage: 200 MG BID ORAL
     Route: 048
     Dates: start: 20031219, end: 20031222
  2. CELEBREX [Suspect]
     Indication: TENDONITIS
     Dosage: 200 MG BID ORAL
     Route: 048
     Dates: start: 20031219, end: 20031222

REACTIONS (7)
  - BURNING SENSATION [None]
  - FEAR [None]
  - FEELING ABNORMAL [None]
  - HYPOAESTHESIA [None]
  - MYALGIA [None]
  - PARAESTHESIA [None]
  - PERIPHERAL COLDNESS [None]
